FAERS Safety Report 15131668 (Version 1)
Quarter: 2018Q3

REPORT INFORMATION
  Report Type: Spontaneous
  Country: US (occurrence: US)
  Receive Date: 20180711
  Receipt Date: 20180711
  Transmission Date: 20181010
  Serious: Yes (Death)
  Sender: FDA-Public Use
  Company Number: US-ANIPHARMA-2018-US-007567

PATIENT
  Age: 78 Year
  Sex: Male

DRUGS (5)
  1. CASODEX [Suspect]
     Active Substance: BICALUTAMIDE
     Indication: PROSTATE CANCER
     Dosage: 50MG
     Route: 048
  2. FIRMAGON [Suspect]
     Active Substance: DEGARELIX ACETATE
     Dosage: 150MG
     Route: 048
  3. XOFIGO [Suspect]
     Active Substance: RADIUM RA-223 DICHLORIDE
  4. ZYTIGA [Suspect]
     Active Substance: ABIRATERONE ACETATE
     Dates: start: 201606, end: 201803
  5. LYNPARZA [Suspect]
     Active Substance: OLAPARIB
     Dosage: 150 MG
     Dates: start: 201803

REACTIONS (3)
  - Prostatic specific antigen increased [Recovered/Resolved]
  - Bone pain [Unknown]
  - Death [Fatal]

NARRATIVE: CASE EVENT DATE: 201803
